FAERS Safety Report 19841030 (Version 1)
Quarter: 2021Q3

REPORT INFORMATION
  Report Type: Other
  Country: US (occurrence: US)
  Receive Date: 20210916
  Receipt Date: 20210916
  Transmission Date: 20211014
  Serious: No
  Sender: FDA-Public Use
  Company Number: US-LEADIANT BIOSCIENCES INC-2020STPI000524

PATIENT
  Sex: Female

DRUGS (7)
  1. KEPPRA [Concomitant]
     Active Substance: LEVETIRACETAM
  2. KLONOPIN [Concomitant]
     Active Substance: CLONAZEPAM
  3. GLEOSTINE [Concomitant]
     Active Substance: LOMUSTINE
  4. ZOFRAN [Concomitant]
     Active Substance: ONDANSETRON HYDROCHLORIDE
  5. VIMPAT [Concomitant]
     Active Substance: LACOSAMIDE
  6. DILANTIN [Concomitant]
     Active Substance: PHENYTOIN
  7. MATULANE [Suspect]
     Active Substance: PROCARBAZINE HYDROCHLORIDE
     Indication: BRAIN NEOPLASM MALIGNANT
     Dosage: 100 MG, DAILY FOR 14 DAYS EVERY 6 WEEKS
     Route: 048
     Dates: start: 20200325

REACTIONS (1)
  - Disease progression [Unknown]
